FAERS Safety Report 8523515-3 (Version None)
Quarter: 2012Q3

REPORT INFORMATION
  Report Type: 
  Country: None (occurrence: None)
  Receive Date: 20120720
  Receipt Date: 20120712
  Transmission Date: 20120928
  Serious: Yes (Other)
  Sender: FDA-Public Use
  Company Number: CA-JNJFOC-20120706800

PATIENT
  Sex: Female
  Weight: 67.5 kg

DRUGS (17)
  1. RAMIPRIL [Concomitant]
     Route: 065
  2. OMEPRAZOLE (PRISOLEC) [Concomitant]
     Route: 065
  3. COLCHICINE [Concomitant]
     Route: 065
  4. DIDROCAL [Concomitant]
     Route: 065
  5. REMICADE [Suspect]
     Indication: RHEUMATOID ARTHRITIS
     Dosage: INFLIXIMAB STARTED APPROX 10 YEARS AGO
     Route: 042
  6. LIPITOR [Concomitant]
     Route: 065
  7. AVAPRO [Concomitant]
     Route: 065
  8. METHOTREXATE [Concomitant]
     Route: 065
  9. MORPHINE SULFATE [Concomitant]
     Route: 065
  10. FOLIC ACID [Concomitant]
     Route: 065
  11. ASPIRIN [Concomitant]
     Route: 065
  12. AMITRIPTYLINE HCL [Concomitant]
     Route: 065
  13. SOTALOL HYDROCHLORIDE [Concomitant]
     Route: 065
  14. PLAQUENIL [Concomitant]
     Route: 065
  15. PREDNISONE [Concomitant]
     Route: 065
  16. VITAMIN B COMPLEX CAP [Concomitant]
     Route: 065
  17. ALLOPURINOL [Concomitant]
     Route: 065

REACTIONS (1)
  - CATARACT [None]
